FAERS Safety Report 9260601 (Version 2)
Quarter: 2013Q2

REPORT INFORMATION
  Report Type: Spontaneous
  Country: US (occurrence: US)
  Receive Date: 20130429
  Receipt Date: 20130521
  Transmission Date: 20140414
  Serious: Yes (Hospitalization)
  Sender: FDA-Public Use
  Company Number: US-SANOFI-AVENTIS-2013SA043188

PATIENT
  Age: 27 Year
  Sex: Female
  Weight: 77 kg

DRUGS (7)
  1. SOLOSTAR [Suspect]
     Indication: TYPE 1 DIABETES MELLITUS
     Dates: start: 2007
  2. LANTUS SOLOSTAR [Suspect]
     Indication: TYPE 1 DIABETES MELLITUS
     Dosage: DOSE:35 UNIT(S)
     Route: 051
     Dates: start: 2007
  3. NOVOLOG [Concomitant]
     Indication: DIABETES MELLITUS
  4. LISINOPRIL [Concomitant]
     Indication: DIABETES MELLITUS
  5. ABILIFY [Concomitant]
     Indication: DEPRESSION
  6. ALL OTHER THERAPEUTIC PRODUCTS [Concomitant]
     Indication: DIABETES MELLITUS
  7. VIIBRYD [Concomitant]
     Indication: DEPRESSION

REACTIONS (1)
  - Diabetic ketoacidosis [Recovered/Resolved]
